FAERS Safety Report 22273106 (Version 1)
Quarter: 2023Q2

REPORT INFORMATION
  Report Type: Spontaneous
  Country: US (occurrence: None)
  Receive Date: 20230501
  Receipt Date: 20230501
  Transmission Date: 20230722
  Serious: Yes (Other)
  Sender: FDA-Public Use
  Company Number: None

PATIENT
  Age: 86 Year
  Sex: Male

DRUGS (1)
  1. ABIRATERONE [Suspect]
     Active Substance: ABIRATERONE
     Dosage: FREQUENCY : DAILY;?
     Route: 048

REACTIONS (8)
  - Joint swelling [None]
  - Nausea [None]
  - Balance disorder [None]
  - Spinal stenosis [None]
  - Condition aggravated [None]
  - Dyspnoea [None]
  - Chest pain [None]
  - Viral infection [None]

NARRATIVE: CASE EVENT DATE: 20230410
